FAERS Safety Report 22922172 (Version 2)
Quarter: 2024Q3

REPORT INFORMATION
  Report Type: Spontaneous
  Country: US (occurrence: None)
  Receive Date: 20230908
  Receipt Date: 20240906
  Transmission Date: 20241017
  Serious: No
  Sender: DOMPE FARMACEUTICI
  Company Number: US-FARMAPROD-202301-0112

PATIENT
  Age: 54 Year
  Sex: Male

DRUGS (33)
  1. OXERVATE [Suspect]
     Active Substance: CENEGERMIN-BKBJ
     Indication: Neurotrophic keratopathy
     Route: 047
     Dates: start: 20221220, end: 20230224
  2. OXERVATE [Suspect]
     Active Substance: CENEGERMIN-BKBJ
     Indication: Hypoaesthesia eye
     Route: 047
     Dates: start: 20230816
  3. FLUCONAZOLE [Concomitant]
     Active Substance: FLUCONAZOLE
  4. GARLIC [Concomitant]
     Active Substance: GARLIC
  5. CHROMIUM [Concomitant]
     Active Substance: CHROMIC CHLORIDE\CHROMIUM
  6. CALCIUM [Concomitant]
     Active Substance: CALCIUM
     Dosage: 500 (1250)
  7. NIACIN [Concomitant]
     Active Substance: NIACIN
  8. MAGNESIUM [Concomitant]
     Active Substance: MAGNESIUM
  9. IODINE [Concomitant]
     Active Substance: IODINE
     Dosage: 5 % -10 %
  10. THIAMINE HYDROCHLORIDE [Concomitant]
     Active Substance: THIAMINE HYDROCHLORIDE
  11. COPPER [Concomitant]
     Active Substance: COPPER
  12. ZINC [Concomitant]
     Active Substance: ZINC
  13. VITAMINS [Concomitant]
     Active Substance: VITAMINS
  14. FISH OIL [Concomitant]
     Active Substance: FISH OIL
     Dosage: 40-60MG-10
  15. VITAMIN D3 [Concomitant]
     Active Substance: CHOLECALCIFEROL
  16. FLUTICASONE PROPIONATE [Concomitant]
     Active Substance: FLUTICASONE PROPIONATE
  17. VITAMIN C [Concomitant]
     Active Substance: ASCORBIC ACID
  18. TYLENOL EXTRA STRENGTH [Concomitant]
     Active Substance: ACETAMINOPHEN
  19. ACCUTANE [Concomitant]
     Active Substance: ISOTRETINOIN
  20. OZEMPIC [Concomitant]
     Active Substance: SEMAGLUTIDE
     Dosage: 0.25 OR 0.5 PEN INJECTOR.
  21. ERYTHROMYCIN [Concomitant]
     Active Substance: ERYTHROMYCIN
  22. TESTOSTERONE ENANTHATE [Concomitant]
     Active Substance: TESTOSTERONE ENANTHATE
  23. TORSEMIDE [Concomitant]
     Active Substance: TORSEMIDE
  24. ATORVASTATIN CALCIUM [Concomitant]
     Active Substance: ATORVASTATIN CALCIUM
  25. LEVOTHYROXINE [Concomitant]
     Active Substance: LEVOTHYROXINE\LEVOTHYROXINE SODIUM
  26. TIZANIDINE HYDROCHLORIDE [Concomitant]
     Active Substance: TIZANIDINE HYDROCHLORIDE
  27. TRAMADOL HCL [Concomitant]
     Active Substance: TRAMADOL HYDROCHLORIDE
  28. POTASSIUM CHLORIDE [Concomitant]
     Active Substance: POTASSIUM CHLORIDE
  29. ZEOLITES [Concomitant]
  30. VITAL TEARS [Concomitant]
  31. BRAIN SPEED [Concomitant]
  32. DIETARY SUPPLEMENT [Concomitant]
     Active Substance: DIETARY SUPPLEMENT
  33. BRAIN AWAKE [Concomitant]

REACTIONS (7)
  - Eye pain [Not Recovered/Not Resolved]
  - Ocular hyperaemia [Unknown]
  - Vision blurred [Not Recovered/Not Resolved]
  - Photophobia [Not Recovered/Not Resolved]
  - Fatigue [Unknown]
  - Foreign body sensation in eyes [Unknown]
  - Off label use [Unknown]

NARRATIVE: CASE EVENT DATE: 20230111
